FAERS Safety Report 8045516-4 (Version None)
Quarter: 2012Q1

REPORT INFORMATION
  Report Type: 
  Country: None (occurrence: None)
  Receive Date: 20120112
  Receipt Date: 20120112
  Transmission Date: 20120608
  Serious: Yes (Other)
  Sender: FDA-Public Use
  Company Number: None

PATIENT
  Age: 75 Year
  Sex: Female
  Weight: 67.586 kg

DRUGS (1)
  1. SIMVASTATIN [Suspect]
     Indication: HYPERTENSION
     Dosage: 1 PER DAY 1 PER DAY

REACTIONS (34)
  - FATIGUE [None]
  - HEADACHE [None]
  - STRESS [None]
  - TREATMENT NONCOMPLIANCE [None]
  - BACK PAIN [None]
  - INFLAMMATION [None]
  - MUSCULAR WEAKNESS [None]
  - URINE OUTPUT DECREASED [None]
  - RENAL PAIN [None]
  - DYSPEPSIA [None]
  - DYSGRAPHIA [None]
  - INJURY [None]
  - MUSCLE SPASMS [None]
  - NECK PAIN [None]
  - BLOOD PRESSURE SYSTOLIC INCREASED [None]
  - INFECTION [None]
  - NOCTURIA [None]
  - MALAISE [None]
  - MUSCULOSKELETAL PAIN [None]
  - PAIN IN EXTREMITY [None]
  - FEELING ABNORMAL [None]
  - URINE ANALYSIS ABNORMAL [None]
  - IMPAIRED HEALING [None]
  - EARLY SATIETY [None]
  - INSOMNIA [None]
  - RENAL IMPAIRMENT [None]
  - DIARRHOEA [None]
  - IMPAIRED WORK ABILITY [None]
  - DECREASED APPETITE [None]
  - WEIGHT INCREASED [None]
  - SCIATICA [None]
  - GROIN PAIN [None]
  - OEDEMA PERIPHERAL [None]
  - CYST [None]
